FAERS Safety Report 14551860 (Version 3)
Quarter: 2018Q2

REPORT INFORMATION
  Report Type: Spontaneous
  Country: US (occurrence: US)
  Receive Date: 20180220
  Receipt Date: 20180627
  Transmission Date: 20180711
  Serious: Yes (Hospitalization)
  Sender: FDA-Public Use
  Company Number: US-PFIZER INC-2018067348

PATIENT
  Age: 77 Year
  Sex: Female

DRUGS (2)
  1. XELJANZ XR [Suspect]
     Active Substance: TOFACITINIB CITRATE
     Indication: RHEUMATOID ARTHRITIS
     Dosage: 11 MG, 1X/DAY (ONCE PER DAY AS DIRECTED)
     Route: 048
     Dates: start: 20180119
  2. SULFAMETHOXAZOLE [Concomitant]
     Active Substance: SULFAMETHOXAZOLE
     Dosage: UNK UNK, 2X/DAY

REACTIONS (9)
  - Joint swelling [Not Recovered/Not Resolved]
  - Road traffic accident [Unknown]
  - Skin exfoliation [Recovering/Resolving]
  - Drug ineffective [Unknown]
  - Pelvic fracture [Unknown]
  - Peripheral swelling [Not Recovered/Not Resolved]
  - Limb injury [Unknown]
  - Wound [Recovering/Resolving]
  - Influenza [Recovering/Resolving]

NARRATIVE: CASE EVENT DATE: 2018
